FAERS Safety Report 12400825 (Version 2)
Quarter: 2016Q2

REPORT INFORMATION
  Report Type: Spontaneous
  Country: US (occurrence: US)
  Receive Date: 20160525
  Receipt Date: 20160525
  Transmission Date: 20160815
  Serious: No
  Sender: FDA-Public Use
  Company Number: US-SA-2015SA127851

PATIENT
  Age: 76 Year
  Sex: Male

DRUGS (1)
  1. LANTUS [Suspect]
     Active Substance: INSULIN GLARGINE
     Indication: DIABETES MELLITUS
     Dosage: SPLIT DOSAGE INTO TWO INJECTIONS OF 40 AND 50 UNITS, GIVEN IN THE MORNING AND AFTERNOON
     Route: 065

REACTIONS (2)
  - Hypoacusis [Unknown]
  - Off label use [Unknown]
